FAERS Safety Report 4777441-6 (Version None)
Quarter: 2005Q3

REPORT INFORMATION
  Report Type: 
  Country: None (occurrence: None)
  Receive Date: 20050915
  Receipt Date: 20050830
  Transmission Date: 20060218
  Serious: Yes (Death, Hospitalization)
  Sender: FDA-Public Use
  Company Number: EM2001-0032

PATIENT
  Age: 50 Year
  Sex: Female

DRUGS (19)
  1. PROLEUKIN [Suspect]
     Indication: MALIGNANT MELANOMA
     Dosage: SEE IMAGE
     Route: 058
     Dates: start: 19980420, end: 19980507
  2. HISTAMINE HYDROCHLORIDE (HISTAMINE HYDROCHLORIDE) [Suspect]
     Indication: MALIGNANT MELANOMA
     Dosage: 1 MG, BID, SUBCUTAN.
     Route: 058
     Dates: start: 19980420, end: 19980507
  3. ACETAMINOPHEN [Concomitant]
  4. OMEPRAZOLE [Concomitant]
  5. PROCHLORPERAZINE MALEATE [Concomitant]
  6. FOSPHENYTOIN SODIUM [Concomitant]
  7. VANCOMYCIN [Concomitant]
  8. CEFTAZIDIME SODIUM [Concomitant]
  9. PHENYTOIN [Concomitant]
  10. FLUMAZENIL (FLUMAZENIL) [Concomitant]
  11. METHYLPREDNISOLONE [Concomitant]
  12. LANSOPRAZOLE [Concomitant]
  13. HEPARIN [Concomitant]
  14. CARVEDILOL [Concomitant]
  15. GLYCERYL TRINITRATE (GLYCERYL TRINITRATE) [Concomitant]
  16. IRON (IRON) [Concomitant]
  17. ERYTHROPOIETIN (ERYTHROPOIETIN) [Concomitant]
  18. MAGNESIUM (MAGNESIUM) [Concomitant]
  19. MIDAZOLAM HCL [Concomitant]

REACTIONS (5)
  - CEREBRAL INFARCTION [None]
  - COMA [None]
  - EJECTION FRACTION DECREASED [None]
  - LETHARGY [None]
  - MYOCARDIAL INFARCTION [None]
